FAERS Safety Report 9767929 (Version 1)
Quarter: 2013Q4

REPORT INFORMATION
  Report Type: Spontaneous
  Country: US (occurrence: US)
  Receive Date: 20131217
  Receipt Date: 20131217
  Transmission Date: 20140711
  Serious: No
  Sender: FDA-Public Use
  Company Number: US-ROXANE LABORATORIES, INC.-2013-RO-01976RO

PATIENT
  Age: 85 Year
  Sex: Male

DRUGS (1)
  1. MORPHINE [Suspect]

REACTIONS (1)
  - Drug hypersensitivity [Unknown]
